FAERS Safety Report 4712804-6 (Version None)
Quarter: 2005Q3

REPORT INFORMATION
  Report Type: 
  Country: None (occurrence: None)
  Receive Date: 20050708
  Receipt Date: 20050708
  Transmission Date: 20060218
  Serious: Yes (Hospitalization, Other)
  Sender: FDA-Public Use
  Company Number: None

PATIENT
  Sex: Female
  Weight: 75.6 kg

DRUGS (5)
  1. CISPLATIN [Suspect]
     Indication: SMALL CELL LUNG CANCER STAGE UNSPECIFIED
     Dosage: INDUCTION CHEMOTHERAPY (CYCLE 1+2) FOLLOWED BY CONSOLIDATION CHEMO AND XRT
     Dates: start: 20050418
  2. IRINOTECAN [Suspect]
  3. CARBOPLATIN [Suspect]
  4. ETOPOSIDE [Suspect]
  5. RADIOTHERAPY [Suspect]
     Dosage: 1800 CGY EXTERNAL BEAM, 3D
     Route: 050
     Dates: end: 20050610

REACTIONS (8)
  - ANAEMIA [None]
  - DYSPNOEA [None]
  - HYPERTENSION [None]
  - MYOCARDIAL INFARCTION [None]
  - NEUTROPENIA [None]
  - PROCEDURAL COMPLICATION [None]
  - TACHYCARDIA [None]
  - THROMBOCYTOPENIA [None]
